FAERS Safety Report 9949012 (Version 2)
Quarter: 2014Q2

REPORT INFORMATION
  Report Type: Spontaneous
  Country: US (occurrence: None)
  Receive Date: 20140122
  Receipt Date: 20140421
  Transmission Date: 20141212
  Serious: No
  Sender: FDA-Public Use
  Company Number: AEGR000165

PATIENT
  Age: 58 Year
  Sex: Female
  Weight: 112.5 kg

DRUGS (4)
  1. JUXTAPID (LOMITAPIDE) CAPSULE, 5MG [Suspect]
     Indication: TYPE IIA HYPERLIPIDAEMIA
     Route: 048
     Dates: start: 20130927
  2. PLAVIX (CLOPIDOGREL BISULFATE) (CLOPIDOGREL BISULFATE) [Concomitant]
  3. RANITIDINE (RANITIDINE HYDROCHLORIDE) [Concomitant]
  4. ASPIRIN (ASPIRIN) [Concomitant]

REACTIONS (1)
  - Insomnia [None]
